FAERS Safety Report 7450148-2 (Version None)
Quarter: 2011Q2

REPORT INFORMATION
  Report Type: 
  Country: None (occurrence: None)
  Receive Date: 20110428
  Receipt Date: 20110428
  Transmission Date: 20111010
  Serious: Yes (Life-Threatening, Hospitalization, Disabling)
  Sender: FDA-Public Use
  Company Number: None

PATIENT
  Age: 59 Year
  Sex: Female
  Weight: 114 kg

DRUGS (7)
  1. AZATHIOPRINE [Suspect]
     Indication: SARCOIDOSIS
     Dosage: 100 MG DAILY PO
     Route: 048
     Dates: start: 20110403, end: 20110423
  2. PREDNISONE [Concomitant]
  3. OMEPRAZOLE [Concomitant]
  4. LISINOPRIL [Concomitant]
  5. TRIAMTERENE AND HYDROCHLOROTHIAZIDE [Concomitant]
  6. FLUCONAZOLE [Suspect]
     Indication: VULVOVAGINAL MYCOTIC INFECTION
     Dosage: 100 MG DAILY PO
     Route: 048
     Dates: start: 20110419, end: 20110423
  7. LEVEMIR [Concomitant]

REACTIONS (1)
  - HEPATITIS [None]
